FAERS Safety Report 11925314 (Version 3)
Quarter: 2018Q2

REPORT INFORMATION
  Report Type: Spontaneous
  Country: US (occurrence: US)
  Receive Date: 20160118
  Receipt Date: 20180522
  Transmission Date: 20180711
  Serious: Yes (Hospitalization, Other)
  Sender: FDA-Public Use
  Company Number: US-DSJP-DSU-2015-120157

PATIENT

DRUGS (6)
  1. BENICAR [Suspect]
     Active Substance: OLMESARTAN MEDOXOMIL
     Indication: HYPERTENSION
     Dosage: 40 MG, UNK
     Dates: start: 2002, end: 2011
  2. BENICAR HCT [Suspect]
     Active Substance: HYDROCHLOROTHIAZIDE\OLMESARTAN MEDOXOMIL
     Indication: HYPERTENSION
     Dosage: 40/25MG
     Dates: start: 20020101, end: 2011
  3. BENICAR HCT [Suspect]
     Active Substance: HYDROCHLOROTHIAZIDE\OLMESARTAN MEDOXOMIL
     Indication: FLUID RETENTION
  4. NORVASC [Concomitant]
     Active Substance: AMLODIPINE BESYLATE
     Indication: PRODUCT USED FOR UNKNOWN INDICATION
  5. BENICAR [Suspect]
     Active Substance: OLMESARTAN MEDOXOMIL
     Indication: FLUID RETENTION
  6. TOPROL XL [Concomitant]
     Active Substance: METOPROLOL SUCCINATE
     Indication: PRODUCT USED FOR UNKNOWN INDICATION

REACTIONS (15)
  - Diverticulitis [Unknown]
  - Gallbladder disorder [Recovered/Resolved]
  - Sprue-like enteropathy [Recovering/Resolving]
  - Constipation [Unknown]
  - Hernia [Unknown]
  - Reflux gastritis [Unknown]
  - Hepatic steatosis [Unknown]
  - Hepatomegaly [Unknown]
  - Irritable bowel syndrome [Recovered/Resolved]
  - Biliary colic [Unknown]
  - Abdominal hernia [Recovered/Resolved]
  - Renal failure [Unknown]
  - Depression [Unknown]
  - Anxiety [Unknown]
  - Incisional hernia repair [Unknown]

NARRATIVE: CASE EVENT DATE: 20050101
